FAERS Safety Report 9109343 (Version 5)
Quarter: 2014Q2

REPORT INFORMATION
  Report Type: Spontaneous
  Country: US (occurrence: US)
  Receive Date: 20130222
  Receipt Date: 20140612
  Transmission Date: 20141212
  Serious: Yes (Hospitalization, Other)
  Sender: FDA-Public Use
  Company Number: US-009507513-1302USA009119

PATIENT
  Sex: Female

DRUGS (3)
  1. FOSAMAX [Suspect]
     Indication: OSTEOPOROSIS
     Dosage: 10 MG, QD
     Route: 048
     Dates: start: 1998, end: 200711
  2. VITAMINS (UNSPECIFIED) [Concomitant]
     Dosage: 1 DF, QD
     Dates: start: 1990
  3. CALCIUM (UNSPECIFIED) (+) VITAMIN D (UNSPECIFIED) [Concomitant]
     Dosage: 630MG + 500IU 1-2X/DAY
     Dates: start: 1998

REACTIONS (11)
  - Femur fracture [Recovering/Resolving]
  - Intramedullary rod insertion [Unknown]
  - Radius fracture [Recovering/Resolving]
  - Closed fracture manipulation [Unknown]
  - Fracture delayed union [Unknown]
  - Fracture nonunion [Unknown]
  - Medical device removal [Unknown]
  - Hand fracture [Unknown]
  - Hand fracture [Unknown]
  - Blood cholesterol increased [Unknown]
  - Back pain [Not Recovered/Not Resolved]
